FAERS Safety Report 11915003 (Version 2)
Quarter: 2016Q1

REPORT INFORMATION
  Report Type: Report from Study
  Country: CA (occurrence: CA)
  Receive Date: 20160113
  Receipt Date: 20160118
  Transmission Date: 20160526
  Serious: No
  Sender: FDA-Public Use
  Company Number: CA-ROCHE-1666828

PATIENT
  Age: 44 Year
  Sex: Female

DRUGS (8)
  1. BENADRYL [Concomitant]
     Active Substance: DIPHENHYDRAMINE HYDROCHLORIDE
     Route: 061
     Dates: start: 20151029
  2. TYLENOL [Concomitant]
     Active Substance: ACETAMINOPHEN
     Route: 042
     Dates: start: 20151029
  3. METHOTREXATE [Concomitant]
     Active Substance: METHOTREXATE
  4. VITAMIN C [Concomitant]
     Active Substance: ASCORBIC ACID
  5. ATIVAN [Concomitant]
     Active Substance: LORAZEPAM
  6. ACTEMRA [Suspect]
     Active Substance: TOCILIZUMAB
     Indication: RHEUMATOID ARTHRITIS
     Route: 042
     Dates: start: 20151029
  7. PARIET [Concomitant]
     Active Substance: RABEPRAZOLE SODIUM
  8. FOLIC ACID. [Concomitant]
     Active Substance: FOLIC ACID

REACTIONS (5)
  - Musculoskeletal chest pain [Not Recovered/Not Resolved]
  - Urticaria [Unknown]
  - Oral discomfort [Not Recovered/Not Resolved]
  - Acne [Not Recovered/Not Resolved]
  - Hypoaesthesia [Not Recovered/Not Resolved]

NARRATIVE: CASE EVENT DATE: 20151119
